FAERS Safety Report 7461004-8 (Version None)
Quarter: 2011Q2

REPORT INFORMATION
  Report Type: 
  Country: None (occurrence: None)
  Receive Date: 20110505
  Receipt Date: 20110425
  Transmission Date: 20111010
  Serious: Yes (Hospitalization)
  Sender: FDA-Public Use
  Company Number: US-ELI_LILLY_AND_COMPANY-US201104007775

PATIENT
  Sex: Female

DRUGS (2)
  1. FORTEO [Suspect]
     Dosage: 20 UG, UNK
     Route: 048
     Dates: start: 20110411, end: 20110414
  2. TYLENOL (CAPLET) [Concomitant]

REACTIONS (2)
  - PAIN [None]
  - BONE PAIN [None]
